FAERS Safety Report 6086524-2 (Version None)
Quarter: 2009Q1

REPORT INFORMATION
  Report Type: 
  Country: None (occurrence: None)
  Receive Date: 20090213
  Receipt Date: 20090128
  Transmission Date: 20090719
  Serious: Yes (Hospitalization)
  Sender: FDA-Public Use
  Company Number: B0558044A

PATIENT
  Sex: Male

DRUGS (1)
  1. FORTAZ [Suspect]
     Dosage: INTRAVENOUS
     Route: 042

REACTIONS (7)
  - BRADYCARDIA [None]
  - CARDIAC ARREST [None]
  - DISSEMINATED INTRAVASCULAR COAGULATION [None]
  - DYSPNOEA [None]
  - FALL [None]
  - GAZE PALSY [None]
  - PRODUCT QUALITY ISSUE [None]
